FAERS Safety Report 14599697 (Version 1)
Quarter: 2018Q1

REPORT INFORMATION
  Report Type: Spontaneous
  Country: JP (occurrence: JP)
  Receive Date: 20180305
  Receipt Date: 20180305
  Transmission Date: 20180509
  Serious: Yes (Other)
  Sender: FDA-Public Use
  Company Number: JP-ACS-001012

PATIENT
  Age: 72 Year
  Sex: Female

DRUGS (3)
  1. WARFARIN [Concomitant]
     Active Substance: WARFARIN
     Route: 065
  2. CEFTRIAXONE. [Suspect]
     Active Substance: CEFTRIAXONE
     Indication: KLEBSIELLA INFECTION
     Route: 042
  3. VITAMIN K [Concomitant]
     Active Substance: PHYTONADIONE
     Route: 065

REACTIONS (1)
  - Factor V inhibition [Recovering/Resolving]
